FAERS Safety Report 11718035 (Version 2)
Quarter: 2015Q4

REPORT INFORMATION
  Report Type: Spontaneous
  Country: TW (occurrence: TW)
  Receive Date: 20151110
  Receipt Date: 20151209
  Transmission Date: 20160304
  Serious: Yes (Hospitalization, Other)
  Sender: FDA-Public Use
  Company Number: TW-ALKEM-001320

PATIENT
  Age: 60 Year
  Sex: Female

DRUGS (2)
  1. CARBAMAZEPINE. [Interacting]
     Active Substance: CARBAMAZEPINE
     Indication: PRODUCT USED FOR UNKNOWN INDICATION
  2. QUETIAPINE/QUETIAPINE FUMARATE [Suspect]
     Active Substance: QUETIAPINE FUMARATE
     Indication: PRODUCT USED FOR UNKNOWN INDICATION
     Dosage: TAPERED TO 200 MG/DAY, 150MG/DAY, 100 MG/DAY AND FINALLY WITHDRAWN

REACTIONS (10)
  - Pneumonia aspiration [Recovering/Resolving]
  - Upper respiratory tract infection [Recovered/Resolved]
  - Neuroleptic malignant syndrome [Recovered/Resolved]
  - Hypophagia [None]
  - Stereotypy [None]
  - Cerebral ventricle dilatation [None]
  - Urinary tract infection [Recovering/Resolving]
  - Drug interaction [Recovered/Resolved]
  - Catatonia [None]
  - Depression [Unknown]
